FAERS Safety Report 20890576 (Version 1)
Quarter: 2022Q2

REPORT INFORMATION
  Report Type: Spontaneous
  Country: US (occurrence: US)
  Receive Date: 20220530
  Receipt Date: 20220530
  Transmission Date: 20220721
  Serious: No
  Sender: FDA-Public Use
  Company Number: US-BRISTOL-MYERS SQUIBB COMPANY-2022-042705

PATIENT
  Age: 84 Year
  Sex: Female
  Weight: 40.3 kg

DRUGS (1)
  1. REVLIMID [Suspect]
     Active Substance: LENALIDOMIDE
     Indication: Lymphoproliferative disorder
     Dosage: FREQ-DAILY FOR 21 DAYS
     Route: 048
     Dates: start: 20211201

REACTIONS (2)
  - Decreased appetite [Unknown]
  - Intentional product use issue [Unknown]
